FAERS Safety Report 8512665-3 (Version None)
Quarter: 2012Q3

REPORT INFORMATION
  Report Type: 
  Country: None (occurrence: None)
  Receive Date: 20120716
  Receipt Date: 20120710
  Transmission Date: 20120928
  Serious: Yes (Hospitalization)
  Sender: FDA-Public Use
  Company Number: IT-PFIZER INC-2012141891

PATIENT
  Age: 70 Year
  Sex: Male

DRUGS (17)
  1. AMPICILLIN [Suspect]
     Indication: ENCEPHALITIS
     Dosage: 12 G, 1X/DAY
     Route: 042
     Dates: start: 20120519, end: 20120529
  2. ACETYLSALICYLIC ACID [Concomitant]
     Dosage: 100 MG, UNK
     Route: 048
  3. DECADRON [Concomitant]
  4. OMEPRAZOLE [Concomitant]
     Dosage: 40 MG, UNK
     Route: 048
  5. ACICLOVIR [Concomitant]
     Dosage: 2250 MG, UNK
     Dates: start: 20120516, end: 20120606
  6. METFORMIN HCL [Concomitant]
     Dosage: 1515 MG, UNK
     Route: 048
  7. LASIX [Concomitant]
     Dosage: 60 MG, UNK
     Route: 042
  8. OMNIPAQUE 140 [Concomitant]
     Indication: COMPUTERISED TOMOGRAM
     Dosage: 130 ML, UNK
     Dates: start: 20120529, end: 20120529
  9. ALFUZOSIN HYDROCHLORIDE [Concomitant]
  10. KEPPRA [Concomitant]
     Indication: CONVULSION
     Dosage: 500 MG, 2X/DAY
     Route: 048
     Dates: start: 20120519, end: 20120606
  11. PROSTIGMINA [Concomitant]
  12. MERREM [Suspect]
     Indication: ENCEPHALITIS
     Dosage: 3 G, 1X/DAY
     Route: 042
     Dates: start: 20120529, end: 20120531
  13. CALCIUM GLUCONATE [Concomitant]
  14. ENOXAPARIN SODIUM [Concomitant]
     Dosage: 4000 IU, UNK
     Route: 058
  15. PHENYTOIN SODIUM [Suspect]
     Indication: CONVULSION
     Dosage: 4 DF, 1X/DAY
     Route: 042
     Dates: start: 20120516, end: 20120529
  16. OPTIRAY 160 [Concomitant]
     Indication: COMPUTERISED TOMOGRAM
     Dosage: 130 ML, UNK
     Route: 042
  17. LANTUS [Concomitant]
     Route: 058

REACTIONS (2)
  - DRUG LEVEL INCREASED [None]
  - RASH MACULO-PAPULAR [None]
